FAERS Safety Report 15232242 (Version 3)
Quarter: 2018Q3

REPORT INFORMATION
  Report Type: Spontaneous
  Country: US (occurrence: US)
  Receive Date: 20180802
  Receipt Date: 20180905
  Transmission Date: 20181010
  Serious: No
  Sender: FDA-Public Use
  Company Number: US-PFIZER INC-2018310433

PATIENT
  Age: 56 Year
  Sex: Female
  Weight: 62 kg

DRUGS (1)
  1. IBRANCE [Suspect]
     Active Substance: PALBOCICLIB
     Indication: BREAST CANCER METASTATIC
     Dosage: 100 MG, CYCLIC [DAYS 1?21 Q28 DAYS]
     Route: 048
     Dates: start: 20180614, end: 2018

REACTIONS (9)
  - Hot flush [Unknown]
  - Menopause [Unknown]
  - Rash erythematous [Unknown]
  - White blood cell count decreased [Unknown]
  - Pain [Unknown]
  - Skin burning sensation [Unknown]
  - Skin injury [Unknown]
  - Rash generalised [Unknown]
  - Rash pruritic [Unknown]

NARRATIVE: CASE EVENT DATE: 2018
